FAERS Safety Report 6543906-X (Version None)
Quarter: 2010Q1

REPORT INFORMATION
  Report Type: 
  Country: None (occurrence: None)
  Receive Date: 20100120
  Receipt Date: 20100114
  Transmission Date: 20100710
  Serious: Yes (Death)
  Sender: FDA-Public Use
  Company Number: IT-TEVA-220909ISR

PATIENT
  Sex: Female

DRUGS (3)
  1. TRAMADOL [Suspect]
     Indication: PAIN IN EXTREMITY
     Route: 048
     Dates: start: 20090803, end: 20090805
  2. INDOMETHACIN [Suspect]
     Indication: PAIN IN EXTREMITY
     Route: 048
     Dates: start: 20090705, end: 20090725
  3. WARFARIN SODIUM [Concomitant]
     Indication: HEART VALVE REPLACEMENT

REACTIONS (6)
  - COAGULATION TIME PROLONGED [None]
  - CONFABULATION [None]
  - CONFUSIONAL STATE [None]
  - DEHYDRATION [None]
  - DYSPNOEA [None]
  - LACTIC ACIDOSIS [None]
